FAERS Safety Report 15304505 (Version 1)
Quarter: 2018Q3

REPORT INFORMATION
  Report Type: Spontaneous
  Country: US (occurrence: US)
  Receive Date: 20180809
  Receipt Date: 20180809
  Transmission Date: 20181010
  Serious: Yes (Life-Threatening, Hospitalization, Disabling, Other)
  Sender: FDA-Public Use
  Company Number: None

PATIENT
  Sex: Female
  Weight: 56.7 kg

DRUGS (4)
  1. KEPPRA [Suspect]
     Active Substance: LEVETIRACETAM
     Indication: SOMATIC SYMPTOM DISORDER
     Route: 048
     Dates: start: 2012, end: 2018
  2. CLONAZEPAM 0.5MG [Suspect]
     Active Substance: CLONAZEPAM
     Indication: SOMATIC SYMPTOM DISORDER
     Route: 048
     Dates: start: 2005, end: 2010
  3. CLONAZEPAM 0.5MG [Suspect]
     Active Substance: CLONAZEPAM
     Indication: SEIZURE
     Route: 048
     Dates: start: 2005, end: 2010
  4. KEPPRA [Suspect]
     Active Substance: LEVETIRACETAM
     Indication: SEIZURE
     Route: 048
     Dates: start: 2012, end: 2018

REACTIONS (16)
  - Skin discolouration [None]
  - Aphonia [None]
  - Increased tendency to bruise [None]
  - Drug hypersensitivity [None]
  - Paraesthesia [None]
  - Contusion [None]
  - Blister [None]
  - Scar [None]
  - Seizure [None]
  - Anaphylactic shock [None]
  - Chest discomfort [None]
  - Rhinorrhoea [None]
  - Discomfort [None]
  - Oropharyngeal pain [None]
  - Hypoaesthesia [None]
  - Drug dependence [None]
